FAERS Safety Report 8347587-4 (Version None)
Quarter: 2012Q2

REPORT INFORMATION
  Report Type: 
  Country: None (occurrence: None)
  Receive Date: 20120509
  Receipt Date: 20120427
  Transmission Date: 20120825
  Serious: Yes (Death, Life-Threatening, Hospitalization, Other)
  Sender: FDA-Public Use
  Company Number: US-BRISTOL-MYERS SQUIBB COMPANY-16557274

PATIENT
  Age: 86 Year
  Sex: Female

DRUGS (11)
  1. COZAAR [Concomitant]
  2. COENZYME Q10 [Concomitant]
  3. VITAMIN D [Concomitant]
  4. SIMVASTATIN [Concomitant]
  5. INSULIN [Concomitant]
  6. PEPCID [Concomitant]
  7. VITAMIN B COMPLEX CAP [Concomitant]
  8. COUMADIN [Suspect]
     Indication: DEEP VEIN THROMBOSIS
     Dosage: 2.5 MG OF COUMADIN 3 DAYS A WEEK AND 5 MG ON THE OTHER 4 DAYS OF THE WEEK.
  9. FLORINEF [Suspect]
     Dosage: TAKEN OFF:20APR12
  10. IRON SUPPLEMENT [Concomitant]
  11. ASPIRIN [Suspect]

REACTIONS (6)
  - DEEP VEIN THROMBOSIS [None]
  - HAEMORRHAGE [None]
  - CARDIAC FAILURE CONGESTIVE [None]
  - DEATH [None]
  - ANAEMIA [None]
  - INTERNATIONAL NORMALISED RATIO INCREASED [None]
